FAERS Safety Report 9169522 (Version 1)
Quarter: 2013Q1

REPORT INFORMATION
  Report Type: Spontaneous
  Country: US (occurrence: US)
  Receive Date: 20130318
  Receipt Date: 20130318
  Transmission Date: 20140127
  Serious: Yes (Death, Hospitalization, Other)
  Sender: FDA-Public Use
  Company Number: US-B.I. PHARMACEUTICALS,INC./RIDGEFIELD-2013-BI-06877GD

PATIENT
  Age: 83 Year
  Sex: Male

DRUGS (2)
  1. PRADAXA [Suspect]
     Indication: ATRIAL FIBRILLATION
     Dosage: 300 MG
  2. ASPIRIN [Suspect]
     Dosage: 81 MG

REACTIONS (10)
  - Respiratory disorder [Fatal]
  - Haemorrhage intracranial [Unknown]
  - Subdural haematoma [Unknown]
  - Spontaneous haematoma [Unknown]
  - Mental status changes [Unknown]
  - Hemiparesis [Unknown]
  - Aphasia [Unknown]
  - Cerebral haemorrhage [Unknown]
  - Brain midline shift [Unknown]
  - Coagulopathy [Recovered/Resolved]
